FAERS Safety Report 4992148-8 (Version None)
Quarter: 2006Q2

REPORT INFORMATION
  Report Type: 
  Country: None (occurrence: None)
  Receive Date: 20060504
  Receipt Date: 20060425
  Transmission Date: 20061013
  Serious: Yes (Other)
  Sender: FDA-Public Use
  Company Number: US-JNJFOC-20060200456

PATIENT
  Sex: Female
  Weight: 28.58 kg

DRUGS (1)
  1. CONCERTA [Suspect]

REACTIONS (1)
  - GROWTH RETARDATION [None]
